FAERS Safety Report 5386540-X (Version None)
Quarter: 2007Q3

REPORT INFORMATION
  Report Type: 
  Country: None (occurrence: None)
  Receive Date: 20070713
  Receipt Date: 20070628
  Transmission Date: 20080115
  Serious: Yes (Other)
  Sender: FDA-Public Use
  Company Number: US-PURDUE-DEU_2007_0003416

PATIENT
  Age: 4 Year
  Sex: Male

DRUGS (4)
  1. MORPHINE SULFATE [Suspect]
     Indication: SEDATIVE THERAPY
     Dosage: UNK, SEE TEXT
  2. MIDAZOLAM HCL [Suspect]
     Indication: SEDATIVE THERAPY
     Dosage: .5 MG/KG, HS
  3. CHLORAL HYDRATE [Suspect]
     Indication: SEDATIVE THERAPY
     Dosage: UNK, SEE TEXT
  4. FENTANYL TRANSDERMAL SYSTEM [Suspect]
     Indication: SEDATIVE THERAPY
     Dosage: UNK, SEE TEXT

REACTIONS (2)
  - DRUG WITHDRAWAL SYNDROME [None]
  - STATUS EPILEPTICUS [None]
